FAERS Safety Report 7353564-2 (Version None)
Quarter: 2011Q1

REPORT INFORMATION
  Report Type: 
  Country: None (occurrence: None)
  Receive Date: 20110310
  Receipt Date: 20110310
  Transmission Date: 20110831
  Serious: Yes (Other)
  Sender: FDA-Public Use
  Company Number: None

PATIENT
  Sex: Female
  Weight: 47.1741 kg

DRUGS (2)
  1. ACTEMRA [Suspect]
     Indication: RHEUMATOID ARTHRITIS
     Dosage: ACETEMRA Q 4 WEEKS IV (8MG/KG) 4MG/KG 1ST DOSE, 8MG/KG 2ND DOSE
     Route: 042
     Dates: start: 20110304
  2. ACTEMRA [Suspect]
     Indication: RHEUMATOID ARTHRITIS
     Dosage: ACETEMRA Q 4 WEEKS IV (8MG/KG) 4MG/KG 1ST DOSE, 8MG/KG 2ND DOSE
     Route: 042
     Dates: start: 20110204

REACTIONS (2)
  - MUCOSAL ULCERATION [None]
  - MUCOSAL INFLAMMATION [None]
